FAERS Safety Report 17638577 (Version 5)
Quarter: 2020Q2

REPORT INFORMATION
  Report Type: Report from Study
  Country: US (occurrence: US)
  Receive Date: 20200407
  Receipt Date: 20200617
  Transmission Date: 20200713
  Serious: Yes (Hospitalization)
  Sender: FDA-Public Use
  Company Number: NVSC2020US091158

PATIENT
  Age: 59 Year
  Sex: Female

DRUGS (2)
  1. COSENTYX [Suspect]
     Active Substance: SECUKINUMAB
     Indication: PSORIATIC ARTHROPATHY
     Dosage: 300 MG, QMO
     Route: 058
     Dates: start: 20190801
  2. COSENTYX [Suspect]
     Active Substance: SECUKINUMAB
     Dosage: 300 MG, Q4W
     Route: 065

REACTIONS (10)
  - Hypoaesthesia [Recovering/Resolving]
  - Intervertebral disc disorder [Recovering/Resolving]
  - Nasopharyngitis [Recovered/Resolved]
  - Product dose omission [Unknown]
  - Paraesthesia [Recovering/Resolving]
  - Bronchitis [Recovered/Resolved]
  - Ankylosing spondylitis [Recovering/Resolving]
  - Cervical radiculopathy [Recovering/Resolving]
  - Oropharyngeal pain [Recovered/Resolved]
  - Bronchitis [Unknown]

NARRATIVE: CASE EVENT DATE: 20200206
